FAERS Safety Report 24691742 (Version 1)
Quarter: 2024Q4

REPORT INFORMATION
  Report Type: Report from Study
  Country: IL (occurrence: IL)
  Receive Date: 20241203
  Receipt Date: 20241203
  Transmission Date: 20250114
  Serious: Yes (Hospitalization)
  Sender: NOVARTIS
  Company Number: IL-002147023-NVSC2024IL227998

PATIENT
  Age: 23 Year
  Sex: Male
  Weight: 74.5 kg

DRUGS (12)
  1. FABHALTA [Suspect]
     Active Substance: IPTACOPAN HYDROCHLORIDE
     Indication: C3 glomerulopathy
     Dosage: 400 MG, QD
     Route: 048
     Dates: start: 20240609
  2. FABHALTA [Suspect]
     Active Substance: IPTACOPAN HYDROCHLORIDE
     Dosage: 400 MG, QD
     Route: 048
     Dates: start: 20240830
  3. FABHALTA [Suspect]
     Active Substance: IPTACOPAN HYDROCHLORIDE
     Dosage: 400 MG, QD
     Route: 048
     Dates: start: 20241106
  4. TACROLIMUS [Concomitant]
     Active Substance: TACROLIMUS
     Indication: Renal transplant
     Dosage: 17 MG, QD
     Route: 065
     Dates: start: 201909
  5. TACROLIMUS [Concomitant]
     Active Substance: TACROLIMUS
     Dosage: 17 MG, QD
     Route: 065
     Dates: start: 20240830
  6. TACROLIMUS [Concomitant]
     Active Substance: TACROLIMUS
     Dosage: 17 MG, QD
     Route: 065
     Dates: start: 20241106
  7. MYCOPHENOLIC ACID [Concomitant]
     Active Substance: MYCOPHENOLIC ACID
     Indication: Renal transplant
     Dosage: 1440 MG, QD
     Route: 065
     Dates: start: 201909
  8. MYCOPHENOLIC ACID [Concomitant]
     Active Substance: MYCOPHENOLIC ACID
     Dosage: 1440 MG, QD
     Route: 065
     Dates: start: 20240830
  9. MYCOPHENOLIC ACID [Concomitant]
     Active Substance: MYCOPHENOLIC ACID
     Dosage: 1440 MG, QD
     Route: 065
     Dates: start: 20241106
  10. PREDNISONE [Concomitant]
     Active Substance: PREDNISONE
     Indication: Renal transplant
     Dosage: 5 MG, QD
     Route: 065
     Dates: start: 201909
  11. PREDNISONE [Concomitant]
     Active Substance: PREDNISONE
     Dosage: 5 MG, QD
     Route: 065
     Dates: start: 20240830
  12. PREDNISONE [Concomitant]
     Active Substance: PREDNISONE
     Dosage: 5 MG, QD
     Route: 065
     Dates: start: 20241106

REACTIONS (18)
  - Abdominal pain [Recovered/Resolved]
  - Melaena [Recovered/Resolved]
  - Hyperkalaemia [Recovered/Resolved]
  - Discoloured vomit [Unknown]
  - Diarrhoea [Unknown]
  - Vomiting [Unknown]
  - Pyrexia [Unknown]
  - Leukocytosis [Unknown]
  - Neutrophilia [Unknown]
  - Monocytosis [Unknown]
  - C-reactive protein increased [Unknown]
  - Metabolic acidosis [Unknown]
  - Hyperphosphataemia [Unknown]
  - Iron deficiency anaemia [Unknown]
  - Candida infection [Unknown]
  - Abdominal pain [Unknown]
  - Lymphoid hyperplasia of intestine [Unknown]
  - Chronic gastritis [Unknown]

NARRATIVE: CASE EVENT DATE: 20240831
